FAERS Safety Report 22007247 (Version 7)
Quarter: 2024Q1

REPORT INFORMATION
  Report Type: Spontaneous
  Country: CA (occurrence: CA)
  Receive Date: 20230217
  Receipt Date: 20240321
  Transmission Date: 20240410
  Serious: Yes (Other)
  Sender: FDA-Public Use
  Company Number: CA-CELLTRION INC.-2021CA018942

PATIENT

DRUGS (39)
  1. INFLECTRA [Suspect]
     Active Substance: INFLIXIMAB-DYYB
     Indication: Colitis ulcerative
     Dosage: 5MG/KG,0 WEEK DOSE
     Route: 042
     Dates: start: 20170908, end: 20170908
  2. INFLECTRA [Suspect]
     Active Substance: INFLIXIMAB-DYYB
     Dosage: 5MG/KG,2 WEEK DOSE
     Route: 042
     Dates: start: 20170922, end: 20170922
  3. INFLECTRA [Suspect]
     Active Substance: INFLIXIMAB-DYYB
     Dosage: 5MG/KG,EVERY 6 WEEK DOSE
     Route: 042
     Dates: start: 20171020, end: 20171020
  4. INFLECTRA [Suspect]
     Active Substance: INFLIXIMAB-DYYB
     Dosage: 5 MG/KG,EVERY 8WEEKS
     Route: 042
     Dates: start: 20171215, end: 20181126
  5. INFLECTRA [Suspect]
     Active Substance: INFLIXIMAB-DYYB
     Dosage: 5 MG/KG,EVERY 6WEEKS
     Route: 042
     Dates: start: 20190105, end: 20200117
  6. INFLECTRA [Suspect]
     Active Substance: INFLIXIMAB-DYYB
     Dosage: 7.5 MG/KG,EVERY 6WEEKS
     Route: 042
     Dates: start: 20200228, end: 20200925
  7. INFLECTRA [Suspect]
     Active Substance: INFLIXIMAB-DYYB
     Dosage: 7.5 MG/KG,EVERY 7WEEKS
     Route: 042
     Dates: start: 20201106
  8. INFLECTRA [Suspect]
     Active Substance: INFLIXIMAB-DYYB
     Dosage: 7.5 MG/KG,EVERY 7WEEKS
     Route: 042
     Dates: start: 20211112
  9. INFLECTRA [Suspect]
     Active Substance: INFLIXIMAB-DYYB
     Dosage: 7.5MG/KG, REINDUCTION AT WEEK 0, 2 AND 6, MAINTENANCE FREQUENCY NOT CONFIRMED
     Route: 042
     Dates: start: 20220305
  10. INFLECTRA [Suspect]
     Active Substance: INFLIXIMAB-DYYB
     Dosage: 7.5 MG/KG, REINDUCTION AT WEEK 0, 2 AND 6, MAINTENANCE FREQUENCY Q 7 WEEKS
     Route: 042
  11. INFLECTRA [Suspect]
     Active Substance: INFLIXIMAB-DYYB
     Dosage: 7.5 MG/KG, REINDUCTION AT WEEK 0, 2 AND 6, MAINTENANCE FREQUENCY Q 7 WEEKS(1 DF)
     Route: 042
     Dates: start: 20220305
  12. INFLECTRA [Suspect]
     Active Substance: INFLIXIMAB-DYYB
     Dosage: 7.5 MG/KG, REINDUCTION AT WEEK 0, 2 AND 6, MAINTENANCE FREQUENCY Q 7 WEEKS(1 DF)
     Route: 042
     Dates: start: 20220305, end: 20221104
  13. INFLECTRA [Suspect]
     Active Substance: INFLIXIMAB-DYYB
     Dosage: 690 MG, PATIENT IS SUPPOSED TO RECEIVE 7.5MG/KG
     Route: 042
     Dates: start: 20220321
  14. INFLECTRA [Suspect]
     Active Substance: INFLIXIMAB-DYYB
     Dosage: 710 MG (SUPPOSED TO BE 7.5MG/KG)
     Route: 042
     Dates: start: 20220727, end: 20220727
  15. INFLECTRA [Suspect]
     Active Substance: INFLIXIMAB-DYYB
     Dosage: 7.5 MG/KG, REINDUCTION AT WEEK 0, 2 AND 6, MAINTENANCE FREQUENCY Q 7 WEEKS
     Route: 042
     Dates: start: 20220916
  16. INFLECTRA [Suspect]
     Active Substance: INFLIXIMAB-DYYB
     Dosage: 10 MG/KG, EVERY 7 WEEKS
     Route: 042
     Dates: start: 20221221
  17. INFLECTRA [Suspect]
     Active Substance: INFLIXIMAB-DYYB
     Dosage: 10 MG/KG, EVERY 7 WEEKS
     Route: 042
     Dates: start: 20230207
  18. INFLECTRA [Suspect]
     Active Substance: INFLIXIMAB-DYYB
     Dosage: 10 MG/KG, EVERY 7 WEEKS
     Route: 042
     Dates: start: 20230207
  19. INFLECTRA [Suspect]
     Active Substance: INFLIXIMAB-DYYB
     Dosage: 10 MG/KG, EVERY 7 WEEKS
     Route: 042
     Dates: start: 20230329
  20. INFLECTRA [Suspect]
     Active Substance: INFLIXIMAB-DYYB
     Dosage: 10 MG/KG, EVERY 7 WEEKS
     Route: 042
     Dates: start: 20240123
  21. INFLECTRA [Suspect]
     Active Substance: INFLIXIMAB-DYYB
     Dosage: 10 MG/KG, EVERY 7 WEEKS(970 MG, 7 WEEKS)
     Route: 042
     Dates: start: 20240312
  22. ASPIRIN [Concomitant]
     Active Substance: ASPIRIN
     Dosage: 1 DF
     Route: 042
  23. ASPIRIN [Concomitant]
     Active Substance: ASPIRIN
     Dosage: 1 DF, DOSING INFORMATION FOR ASA UNKNOWN
     Route: 042
  24. ATORVASTATIN [Concomitant]
     Active Substance: ATORVASTATIN
     Dosage: 1 DF
     Route: 065
  25. ATORVASTATIN [Concomitant]
     Active Substance: ATORVASTATIN
     Dosage: 1 DF, DOSING INFORMATION FOR ATORVASTATIN UNKNOWN
     Route: 065
  26. AZATHIOPRINE [Concomitant]
     Active Substance: AZATHIOPRINE
     Dosage: 1 DF
     Route: 042
  27. AZATHIOPRINE [Concomitant]
     Active Substance: AZATHIOPRINE
     Dosage: 1 DF, DOSING INFORMATION FOR AZATHIOPRINE
     Route: 042
  28. CORTISONE [Concomitant]
     Active Substance: CORTISONE
     Dosage: 1 DF
  29. CORTISONE [Concomitant]
     Active Substance: CORTISONE
     Dosage: 1 DF, DOSING INFORMATION FOR CORTISONE UNKNOWN
     Route: 065
  30. LANSOPRAZOLE [Concomitant]
     Active Substance: LANSOPRAZOLE
     Dosage: 1 DF
  31. LANSOPRAZOLE [Concomitant]
     Active Substance: LANSOPRAZOLE
     Dosage: 1 DF, DOSING INFORMATION FOR LANSAPRAZOLE UNKNOWN
     Route: 065
  32. MESALAMINE [Concomitant]
     Active Substance: MESALAMINE
     Dosage: 1 DF
     Route: 042
  33. MESALAMINE [Concomitant]
     Active Substance: MESALAMINE
     Dosage: 1 DF, DOSING INFORMATION FOR MEZAVANT
     Route: 042
  34. MUCINEX [Concomitant]
     Active Substance: GUAIFENESIN
     Dosage: 1 DF, EVERY 12 HOUR
     Route: 065
     Dates: start: 20200226
  35. PREDNISONE [Concomitant]
     Active Substance: PREDNISONE
     Dosage: 1 DF
     Route: 042
  36. PREDNISONE [Concomitant]
     Active Substance: PREDNISONE
     Dosage: 1 DF, DOSING INFORMATION FOR PREDNISONE UNKNOWN
     Route: 042
  37. MESALAMINE [Concomitant]
     Active Substance: MESALAMINE
     Dosage: 1 DF
     Route: 042
  38. MESALAMINE [Concomitant]
     Active Substance: MESALAMINE
     Dosage: 1 DF, DOSING INFORMATION FOR SALOFALK UNKNOWN
     Route: 042
  39. INDAPAMIDE\PERINDOPRIL ERBUMINE [Concomitant]
     Active Substance: INDAPAMIDE\PERINDOPRIL ERBUMINE
     Dosage: 1 DF, DOSING INFORMATION FOR PERINDOPRIL UNKNOWN
     Route: 065
     Dates: start: 20200107

REACTIONS (7)
  - Autoimmune hepatitis [Recovered/Resolved]
  - Bronchitis [Recovering/Resolving]
  - Drug level decreased [Unknown]
  - COVID-19 [Unknown]
  - Blood test abnormal [Not Recovered/Not Resolved]
  - Liver disorder [Not Recovered/Not Resolved]
  - Non-alcoholic fatty liver [Not Recovered/Not Resolved]

NARRATIVE: CASE EVENT DATE: 20220101
